FAERS Safety Report 8086908-7 (Version None)
Quarter: 2012Q1

REPORT INFORMATION
  Report Type: 
  Country: None (occurrence: None)
  Receive Date: 20120128
  Receipt Date: 20110615
  Transmission Date: 20120608
  Serious: No
  Sender: FDA-Public Use
  Company Number: US-ABBOTT-11P-163-0732455-00

PATIENT
  Sex: Female
  Weight: 65.376 kg

DRUGS (4)
  1. CELEBREX [Concomitant]
     Indication: SAPHO SYNDROME
  2. LEFLUNOMIDE [Concomitant]
     Indication: SAPHO SYNDROME
  3. HUMIRA [Suspect]
     Indication: SAPHO SYNDROME
     Dates: start: 20090101, end: 20110419
  4. LEVOTHYROXINE SODIUM [Concomitant]
     Indication: THYROID DISORDER

REACTIONS (1)
  - PAIN [None]
